FAERS Safety Report 5656253-5 (Version None)
Quarter: 2008Q1

REPORT INFORMATION
  Report Type: 
  Country: None (occurrence: None)
  Receive Date: 20080305
  Receipt Date: 20080222
  Transmission Date: 20080703
  Serious: Yes (Other)
  Sender: FDA-Public Use
  Company Number: DSU-2008-00275

PATIENT
  Age: 52 Year
  Sex: Male
  Weight: 102 kg

DRUGS (10)
  1. COLESEVELAM (COLESEVELAM HYDROCHLORIDE) (625 MILLIGRAM) (COLESEVELAM H [Suspect]
     Indication: BLOOD CHOLESTEROL INCREASED
     Dosage: 1875 MG (625 MG, TID), PER ORAL
     Route: 048
     Dates: start: 20080101, end: 20080208
  2. ASPIRIN [Concomitant]
  3. BISOPROLOL FUMARATE [Concomitant]
  4. CLOPIDOGREL (CLOPIDOGREL) (CLOPIDOGREL) [Concomitant]
  5. FLUOXETINE [Concomitant]
  6. ISTIN (AMLODIPINE BESILATE) (AMLODIPINE BESILATE) [Concomitant]
  7. NICORANDIL (NICORANDIL) (NICORANDIL) [Concomitant]
  8. TRAMADOL HCL [Concomitant]
  9. VALSARTAN (VALSARTAN) (VALSARTAN) [Concomitant]
  10. ZOPICLONE (ZOPICLONE) (ZOPICLONE) [Concomitant]

REACTIONS (3)
  - ABDOMINAL DISCOMFORT [None]
  - DIARRHOEA [None]
  - NAUSEA [None]
